FAERS Safety Report 9396220 (Version 1)
Quarter: 2013Q3

REPORT INFORMATION
  Report Type: Spontaneous
  Country: IT (occurrence: IT)
  Receive Date: 20130711
  Receipt Date: 20130711
  Transmission Date: 20140515
  Serious: Yes (Hospitalization)
  Sender: FDA-Public Use
  Company Number: CHPA2013IT011069

PATIENT
  Age: 50 Year
  Sex: Female

DRUGS (1)
  1. PARACETAMOL [Suspect]
     Indication: MUSCULOSKELETAL PAIN
     Dosage: 1000 MG, QD
     Route: 048
     Dates: start: 20130616, end: 20130616

REACTIONS (1)
  - Angioedema [Recovering/Resolving]
